FAERS Safety Report 8479945-1 (Version None)
Quarter: 2012Q2

REPORT INFORMATION
  Report Type: 
  Country: None (occurrence: None)
  Receive Date: 20120615
  Receipt Date: 20120604
  Transmission Date: 20120825
  Serious: Yes (Other)
  Sender: FDA-Public Use
  Company Number: DSA_57791_2012

PATIENT

DRUGS (1)
  1. FLUOROURACIL [Suspect]
     Indication: ACTINIC KERATOSIS
     Dosage: (BID TOPICAL)
     Route: 061

REACTIONS (3)
  - EYE IRRITATION [None]
  - PUNCTATE KERATITIS [None]
  - OFF LABEL USE [None]
